FAERS Safety Report 24630494 (Version 1)
Quarter: 2024Q4

REPORT INFORMATION
  Report Type: Spontaneous
  Country: US (occurrence: None)
  Receive Date: 20241115
  Receipt Date: 20241115
  Transmission Date: 20250115
  Serious: No
  Sender: Public
  Company Number: None

PATIENT
  Age: 63 Year
  Sex: Female

DRUGS (1)
  1. ENBREL [Suspect]
     Active Substance: ETANERCEPT
     Indication: Rheumatoid arthritis
     Dosage: OTHER FREQUENCY : WKLYUSINGTHEAUTOTOUCHDEVICEASDIR;?
     Route: 058
     Dates: end: 202404

REACTIONS (2)
  - Therapy interrupted [None]
  - Infection [None]
